FAERS Safety Report 5585608-2 (Version None)
Quarter: 2008Q1

REPORT INFORMATION
  Report Type: 
  Country: None (occurrence: None)
  Receive Date: 20080109
  Receipt Date: 20071231
  Transmission Date: 20080703
  Serious: Yes (Hospitalization)
  Sender: FDA-Public Use
  Company Number: US-MERCK-0801USA00505

PATIENT
  Age: 64 Year
  Sex: Male

DRUGS (4)
  1. HYDRODIURIL [Suspect]
     Route: 048
     Dates: start: 20050101
  2. PRINIVIL [Concomitant]
     Route: 048
  3. ATENOLOL [Concomitant]
     Route: 048
  4. DOXAZOSIN MESYLATE [Concomitant]
     Route: 048

REACTIONS (2)
  - BLOOD POTASSIUM DECREASED [None]
  - CHEST PAIN [None]
